FAERS Safety Report 5072450-4 (Version None)
Quarter: 2006Q3

REPORT INFORMATION
  Report Type: 
  Country: None (occurrence: None)
  Receive Date: 20060801
  Receipt Date: 20060714
  Transmission Date: 20061208
  Serious: Yes (Disabling, Other)
  Sender: FDA-Public Use
  Company Number: US200607003580

PATIENT
  Sex: 0

DRUGS (1)
  1. HUMULIN R [Suspect]
     Dosage: TRANSPLACENTAL
     Route: 064

REACTIONS (8)
  - ASTHMA [None]
  - ATTENTION DEFICIT/HYPERACTIVITY DISORDER [None]
  - BIPOLAR DISORDER [None]
  - COGNITIVE DISORDER [None]
  - DRUG EXPOSURE DURING PREGNANCY [None]
  - EPILEPSY [None]
  - OPPOSITIONAL DEFIANT DISORDER [None]
  - PREMATURE BABY [None]
